FAERS Safety Report 17478990 (Version 1)
Quarter: 2020Q1

REPORT INFORMATION
  Report Type: Spontaneous
  Country: JP (occurrence: JP)
  Receive Date: 20200228
  Receipt Date: 20200228
  Transmission Date: 20200409
  Serious: Yes (Other)
  Sender: FDA-Public Use
  Company Number: JP-PFIZER INC-2020087729

PATIENT
  Sex: Male

DRUGS (1)
  1. CELECOX [Suspect]
     Active Substance: CELECOXIB
     Dosage: UNK
     Route: 048

REACTIONS (4)
  - Acute kidney injury [Unknown]
  - Renal impairment [Unknown]
  - Nephrotic syndrome [Unknown]
  - Tubulointerstitial nephritis [Unknown]
